FAERS Safety Report 9013040 (Version 1)
Quarter: 2013Q1

REPORT INFORMATION
  Report Type: Spontaneous
  Country: US (occurrence: US)
  Receive Date: 20130114
  Receipt Date: 20130114
  Transmission Date: 20140127
  Serious: No
  Sender: FDA-Public Use
  Company Number: US-PFIZER INC-2013013757

PATIENT
  Sex: Female

DRUGS (2)
  1. RELPAX [Suspect]
     Dosage: UNK, 1X/DAY
     Dates: end: 2011
  2. RELPAX [Suspect]
     Dosage: UNK, 2X/DAY
     Dates: start: 2011

REACTIONS (2)
  - Off label use [Unknown]
  - Medication overuse headache [Unknown]
